FAERS Safety Report 4713015-0 (Version None)
Quarter: 2005Q3

REPORT INFORMATION
  Report Type: 
  Country: None (occurrence: None)
  Receive Date: 20050711
  Receipt Date: 20050629
  Transmission Date: 20060218
  Serious: Yes (Other)
  Sender: FDA-Public Use
  Company Number: 2005093318

PATIENT

DRUGS (1)
  1. SULPERAZON (SULBACTAM, CEFOPERAZONE) [Suspect]
     Indication: ABDOMINAL INFECTION
     Dosage: 2 GRAM (2 GRAM, DAILY), INTRAVENOUS
     Route: 042
     Dates: start: 20050624, end: 20050624

REACTIONS (1)
  - LARYNGEAL OEDEMA [None]
